FAERS Safety Report 6106658-3 (Version None)
Quarter: 2009Q1

REPORT INFORMATION
  Report Type: 
  Country: None (occurrence: None)
  Receive Date: 20090304
  Receipt Date: 20090225
  Transmission Date: 20090719
  Serious: Yes (Life-Threatening, Hospitalization)
  Sender: FDA-Public Use
  Company Number: 119067

PATIENT
  Age: 17 Year
  Sex: Male

DRUGS (2)
  1. ACETAMINOPHEN [Suspect]
     Dosage: 500 MG / ONCE / ORAL
     Route: 048
  2. ACETAMINOPHEN [Suspect]
     Indication: ALLERGY TEST
     Dosage: 75 MG / ONCE / ORAL
     Route: 048

REACTIONS (1)
  - ANAPHYLACTIC REACTION [None]
